FAERS Safety Report 4371479-9 (Version None)
Quarter: 2004Q2

REPORT INFORMATION
  Report Type: 
  Country: None (occurrence: None)
  Receive Date: 20040607
  Receipt Date: 20031217
  Transmission Date: 20050107
  Serious: Yes (Life-Threatening, Other)
  Sender: FDA-Public Use
  Company Number: 200322830GDDC

PATIENT
  Age: 40 Year
  Sex: Female
  Weight: 59.1 kg

DRUGS (5)
  1. ARAVA [Suspect]
     Indication: RHEUMATOID ARTHRITIS
     Route: 048
     Dates: start: 20031009, end: 20031117
  2. ROFECOXIB [Concomitant]
     Route: 048
  3. ZOTON [Concomitant]
     Dosage: DOSE: UNK
  4. FOLIC ACID [Concomitant]
     Route: 048
  5. ESTRADIOL [Concomitant]
     Route: 048

REACTIONS (1)
  - CEREBROVASCULAR ACCIDENT [None]
